FAERS Safety Report 10361356 (Version 2)
Quarter: 2014Q3

REPORT INFORMATION
  Report Type: Report from Study
  Country: DE (occurrence: DE)
  Receive Date: 20140805
  Receipt Date: 20140918
  Transmission Date: 20150326
  Serious: Yes (Hospitalization)
  Sender: FDA-Public Use
  Company Number: DE-ROCHE-1444808

PATIENT
  Age: 64 Year
  Sex: Male

DRUGS (2)
  1. RANIBIZUMAB [Suspect]
     Active Substance: RANIBIZUMAB
     Indication: VISUAL IMPAIRMENT
     Dosage: LAST DOSE PRIOR TO SAE : 11/NOV/2013
     Route: 050
     Dates: start: 20121127
  2. RANIBIZUMAB [Suspect]
     Active Substance: RANIBIZUMAB
     Indication: DIABETIC RETINAL OEDEMA

REACTIONS (3)
  - Hypertension [Unknown]
  - Cardiac failure [Unknown]
  - Angina pectoris [Unknown]

NARRATIVE: CASE EVENT DATE: 20140623
